FAERS Safety Report 6385388-7 (Version None)
Quarter: 2009Q4

REPORT INFORMATION
  Report Type: 
  Country: None (occurrence: None)
  Receive Date: 20091002
  Receipt Date: 20080828
  Transmission Date: 20100525
  Serious: No
  Sender: FDA-Public Use
  Company Number: US-ASTRAZENECA-2008UW17779

PATIENT
  Sex: Female
  Weight: 95.7 kg

DRUGS (11)
  1. ARIMIDEX [Suspect]
     Indication: BREAST CANCER FEMALE
     Route: 048
  2. NEXIUM [Concomitant]
     Route: 048
  3. ATENOLOL [Concomitant]
  4. ZYRTEC [Concomitant]
  5. LASIX [Concomitant]
  6. SYNTHROID [Concomitant]
  7. LORAZEPAM [Concomitant]
  8. SKELAXIN [Concomitant]
  9. POTASSIUM CHLORIDE [Concomitant]
  10. ALTACE [Concomitant]
  11. ZOCOR [Concomitant]

REACTIONS (3)
  - ARTHRITIS [None]
  - BODY HEIGHT DECREASED [None]
  - WEIGHT INCREASED [None]
